FAERS Safety Report 14537586 (Version 1)
Quarter: 2018Q1

REPORT INFORMATION
  Report Type: Spontaneous
  Country: US (occurrence: US)
  Receive Date: 20180215
  Receipt Date: 20180215
  Transmission Date: 20180509
  Serious: No
  Sender: FDA-Public Use
  Company Number: US-JNJFOC-20180125429

PATIENT
  Age: 68 Year
  Sex: Male

DRUGS (5)
  1. PEPCID AC [Suspect]
     Active Substance: FAMOTIDINE
     Indication: ERUCTATION
     Dosage: ONE
     Route: 048
     Dates: start: 20180117
  2. PEPCID AC [Suspect]
     Active Substance: FAMOTIDINE
     Indication: FLATULENCE
     Dosage: ONE
     Route: 048
     Dates: start: 20180117
  3. PEPCID AC [Suspect]
     Active Substance: FAMOTIDINE
     Indication: GASTROINTESTINAL OBSTRUCTION
     Dosage: ONE
     Route: 048
     Dates: start: 20180117
  4. PEPCID AC [Suspect]
     Active Substance: FAMOTIDINE
     Indication: ABDOMINAL DISTENSION
     Dosage: ONE
     Route: 048
     Dates: start: 20180117
  5. PEPCID AC [Suspect]
     Active Substance: FAMOTIDINE
     Indication: ABDOMINAL PAIN UPPER
     Dosage: ONE
     Route: 048
     Dates: start: 20180117

REACTIONS (10)
  - Therapeutic response unexpected [Unknown]
  - Dyspnoea [None]
  - Gastric dilatation [None]
  - Product use in unapproved indication [Recovered/Resolved]
  - Product expiration date issue [Unknown]
  - Product lot number issue [Unknown]
  - Dizziness [Recovered/Resolved]
  - Product quality issue [None]
  - Nausea [Recovered/Resolved]
  - Wrong technique in product usage process [Recovered/Resolved]

NARRATIVE: CASE EVENT DATE: 20180117
